FAERS Safety Report 4880100-2 (Version None)
Quarter: 2005Q4

REPORT INFORMATION
  Report Type: 
  Country: None (occurrence: None)
  Receive Date: 20051223
  Receipt Date: 20051024
  Transmission Date: 20060501
  Serious: No
  Sender: FDA-Public Use
  Company Number: 05P-163-0311177-00

PATIENT
  Age: 72 Year
  Sex: Female
  Weight: 56.6996 kg

DRUGS (4)
  1. HUMIRA [Suspect]
     Indication: RHEUMATOID ARTHRITIS
     Dosage: 40 MG, 1 IN 2 WK, SUBCUTANEOUS
     Route: 058
     Dates: start: 20031101, end: 20050201
  2. INFLIXIMAB [Suspect]
     Dosage: 300 GM, 1 IN 8 WK
     Dates: start: 20011001, end: 20020301
  3. ETANERCEPT [Concomitant]
  4. METHOTREXATE [Concomitant]

REACTIONS (2)
  - NON-SMALL CELL LUNG CANCER [None]
  - WEIGHT DECREASED [None]
